FAERS Safety Report 14250861 (Version 1)
Quarter: 2017Q4

REPORT INFORMATION
  Report Type: Spontaneous
  Country: US (occurrence: None)
  Receive Date: 20171205
  Receipt Date: 20171205
  Transmission Date: 20180321
  Serious: Yes (Life-Threatening, Disabling, Other)
  Sender: FDA-Public Use
  Company Number: None

PATIENT
  Age: 70 Year
  Sex: Male
  Weight: 90.26 kg

DRUGS (3)
  1. METFORMAN [Concomitant]
  2. ALEVE [Concomitant]
     Active Substance: NAPROXEN SODIUM
  3. PRAVASTATIN. [Suspect]
     Active Substance: PRAVASTATIN
     Indication: BLOOD CHOLESTEROL ABNORMAL
     Dosage: 1 PILL ONCE MOUTH
     Route: 048
     Dates: start: 20161001, end: 20170906

REACTIONS (8)
  - Myalgia [None]
  - Loss of personal independence in daily activities [None]
  - Asthenia [None]
  - Lethargy [None]
  - Muscle spasms [None]
  - Pain in extremity [None]
  - Neck pain [None]
  - Pain [None]

NARRATIVE: CASE EVENT DATE: 20170909
